FAERS Safety Report 23362813 (Version 1)
Quarter: 2024Q1

REPORT INFORMATION
  Report Type: Spontaneous
  Country: IT (occurrence: None)
  Receive Date: 20240103
  Receipt Date: 20240103
  Transmission Date: 20240410
  Serious: Yes (Other)
  Sender: FDA-Public Use
  Company Number: 2023A294584

PATIENT
  Age: 54 Year
  Sex: Female

DRUGS (6)
  1. BENRALIZUMAB [Suspect]
     Active Substance: BENRALIZUMAB
     Indication: Asthma
     Dosage: 30.0MG UNKNOWN
     Route: 058
  2. BENRALIZUMAB [Suspect]
     Active Substance: BENRALIZUMAB
     Indication: Sinusitis
     Dosage: 30.0MG UNKNOWN
     Route: 058
  3. BENRALIZUMAB [Suspect]
     Active Substance: BENRALIZUMAB
     Indication: Asthma
     Dosage: 30.0MG UNKNOWN
     Route: 058
  4. BENRALIZUMAB [Suspect]
     Active Substance: BENRALIZUMAB
     Indication: Sinusitis
     Dosage: 30.0MG UNKNOWN
     Route: 058
  5. OMALIZUMAB [Concomitant]
     Active Substance: OMALIZUMAB
     Dosage: 300.0MG UNKNOWN
  6. MEPOLIZUMAB [Concomitant]
     Active Substance: MEPOLIZUMAB
     Dosage: 100.0MG UNKNOWN

REACTIONS (4)
  - Deafness [Unknown]
  - Chronic rhinosinusitis with nasal polyps [Unknown]
  - Eosinophilic otitis media [Unknown]
  - Drug ineffective [Unknown]
